FAERS Safety Report 6666162-0 (Version None)
Quarter: 2010Q2

REPORT INFORMATION
  Report Type: 
  Country: None (occurrence: None)
  Receive Date: 20100402
  Receipt Date: 20100329
  Transmission Date: 20101027
  Serious: Yes (Other)
  Sender: FDA-Public Use
  Company Number: US-MERCK-1003USA04807

PATIENT

DRUGS (2)
  1. EMEND [Suspect]
     Route: 048
  2. IFOSFAMIDE [Concomitant]
     Route: 065

REACTIONS (1)
  - ENCEPHALOPATHY [None]
